FAERS Safety Report 6834176-3 (Version None)
Quarter: 2010Q3

REPORT INFORMATION
  Report Type: 
  Country: None (occurrence: None)
  Receive Date: 20100712
  Receipt Date: 20081125
  Transmission Date: 20110219
  Serious: Yes (Other)
  Sender: FDA-Public Use
  Company Number: US-PFIZER INC-2007034811

PATIENT
  Sex: Female

DRUGS (7)
  1. CHANTIX [Suspect]
     Indication: SMOKING CESSATION THERAPY
     Route: 048
     Dates: start: 20070401, end: 20070601
  2. TOPAMAX [Interacting]
     Indication: CONVULSION
     Dosage: 100 MG, 2X/DAY
     Route: 048
  3. TOPAMAX [Interacting]
     Indication: EPILEPSY
  4. CYMBALTA [Concomitant]
     Route: 048
  5. PREMARIN [Concomitant]
     Route: 048
  6. NEXIUM [Concomitant]
     Route: 048
  7. METHADONE HCL [Concomitant]
     Route: 048

REACTIONS (2)
  - CONVULSION [None]
  - DRUG INTERACTION [None]
